FAERS Safety Report 6760248-8 (Version None)
Quarter: 2010Q2

REPORT INFORMATION
  Report Type: 
  Country: None (occurrence: None)
  Receive Date: 20100608
  Receipt Date: 20011012
  Transmission Date: 20101027
  Serious: No
  Sender: FDA-Public Use
  Company Number: 2001SUS0931

PATIENT
  Age: 33 Year
  Sex: Female

DRUGS (6)
  1. SUSTIVA [Suspect]
     Indication: HIV INFECTION
     Dosage: 600 MG AES#DOSE_FREQUENCY: DLY
     Route: 048
     Dates: start: 20000208
  2. LAMIVUDINE [Suspect]
     Indication: HIV INFECTION
     Dosage: 600 MG AES#DOSE_FREQUENCY: DLY
     Route: 048
     Dates: start: 20000208, end: 20000901
  3. LAMIVUDINE + ZIDOVUDINE [Suspect]
     Indication: HIV INFECTION
     Dosage: 2 DLY
     Route: 048
     Dates: start: 20000208
  4. NEVIRAPINE [Suspect]
     Indication: HIV INFECTION
     Dosage: 400 MG AES#DOSE_FREQUENCY: DLY
     Route: 048
     Dates: start: 20000912
  5. NELFINAVIR [Suspect]
     Indication: HIV INFECTION
     Dosage: 2400 MG AES#DOSE_FREQUENCY: DLY
     Route: 048
     Dates: start: 20010504
  6. ZIDOVUDINE [Suspect]
     Indication: HIV INFECTION
     Dosage: 550 MG AES#DOSE_FREQUENCY: UNK
     Route: 042
     Dates: start: 20010509

REACTIONS (2)
  - NORMAL NEWBORN [None]
  - PREGNANCY [None]
